FAERS Safety Report 6009158-4 (Version None)
Quarter: 2008Q4

REPORT INFORMATION
  Report Type: 
  Country: None (occurrence: None)
  Receive Date: 20081216
  Receipt Date: 20081209
  Transmission Date: 20090506
  Serious: Yes (Death, Hospitalization)
  Sender: FDA-Public Use
  Company Number: 232697K08USA

PATIENT
  Age: 42 Year
  Sex: Male

DRUGS (1)
  1. REBIF [Suspect]
     Indication: OFF LABEL USE
     Dosage: 44 MCG
     Dates: start: 20080908, end: 20081006

REACTIONS (10)
  - ANGER [None]
  - COMPLETED SUICIDE [None]
  - CONDITION AGGRAVATED [None]
  - GAIT DISTURBANCE [None]
  - INCORRECT DOSE ADMINISTERED [None]
  - INFLUENZA [None]
  - MOOD SWINGS [None]
  - NEUROMYELITIS OPTICA [None]
  - OFF LABEL USE [None]
  - VISION BLURRED [None]
